FAERS Safety Report 9795618 (Version 3)
Quarter: 2014Q1

REPORT INFORMATION
  Report Type: Spontaneous
  Country: US (occurrence: US)
  Receive Date: 20140103
  Receipt Date: 20140113
  Transmission Date: 20141002
  Serious: No
  Sender: FDA-Public Use
  Company Number: US-PFIZER INC-2013299317

PATIENT
  Age: 48 Year
  Sex: Female

DRUGS (9)
  1. ENBREL [Suspect]
     Dosage: UNK
  2. METHOTREXATE SODIUM [Suspect]
     Dosage: 2.5 MG, UNK
     Route: 048
  3. HUMIRA [Suspect]
     Dosage: UNK
  4. CIMZIA [Concomitant]
     Dosage: UNK
  5. OMEPRAZOLE [Concomitant]
     Dosage: 40 MG, UNK
     Route: 048
  6. FOLIC ACID [Concomitant]
     Dosage: 1 MG, UNK
     Route: 048
  7. REMICADE [Concomitant]
     Dosage: 100 MG, UNK
     Route: 042
  8. PREDNISONE [Concomitant]
     Dosage: 5 MG, UNK
     Route: 048
  9. XELJANZ [Concomitant]
     Dosage: UNK

REACTIONS (5)
  - Treatment failure [Unknown]
  - Pain [Unknown]
  - Musculoskeletal stiffness [Unknown]
  - Joint swelling [Unknown]
  - Activities of daily living impaired [Unknown]
